FAERS Safety Report 6358248-5 (Version None)
Quarter: 2009Q3

REPORT INFORMATION
  Report Type: 
  Country: None (occurrence: None)
  Receive Date: 20090911
  Receipt Date: 20090910
  Transmission Date: 20100115
  Serious: Yes (Other)
  Sender: FDA-Public Use
  Company Number: ADR18412009

PATIENT
  Age: 79 Year
  Sex: Female

DRUGS (1)
  1. ALENDRONIC ACID [Suspect]

REACTIONS (1)
  - OSTEOMYELITIS [None]
